FAERS Safety Report 10261600 (Version 2)
Quarter: 2014Q2

REPORT INFORMATION
  Report Type: Spontaneous
  Country: JP (occurrence: JP)
  Receive Date: 20140626
  Receipt Date: 20140626
  Transmission Date: 20141212
  Serious: Yes (Life-Threatening)
  Sender: FDA-Public Use
  Company Number: JP-SA-2014SA060525

PATIENT
  Age: 48 Year
  Sex: Female
  Weight: 81.5 kg

DRUGS (6)
  1. ALLEGRA [Suspect]
     Indication: RHINITIS ALLERGIC
     Route: 048
     Dates: end: 20140424
  2. AMARYL [Suspect]
     Indication: TYPE 2 DIABETES MELLITUS
     Route: 048
     Dates: end: 20140424
  3. AZULFIDINE [Suspect]
     Indication: ARTHRALGIA
     Route: 048
     Dates: start: 20140311, end: 20140424
  4. EQUA [Concomitant]
     Indication: TYPE 2 DIABETES MELLITUS
     Route: 048
     Dates: end: 20140424
  5. AZILVA [Concomitant]
     Indication: HYPERTENSION
     Route: 048
     Dates: end: 20140424
  6. EPADEL [Concomitant]
     Indication: HYPERLIPIDAEMIA
     Route: 048
     Dates: end: 20140424

REACTIONS (4)
  - Neutropenia [Recovered/Resolved]
  - Pyrexia [Recovered/Resolved]
  - Toothache [Recovered/Resolved]
  - Purulence [Recovered/Resolved]
